FAERS Safety Report 6986664-7 (Version None)
Quarter: 2010Q3

REPORT INFORMATION
  Report Type: 
  Country: None (occurrence: None)
  Receive Date: 20100915
  Receipt Date: 20090714
  Transmission Date: 20110219
  Serious: Yes (Other)
  Sender: FDA-Public Use
  Company Number: US-WYE-H10157309

PATIENT
  Sex: Female

DRUGS (1)
  1. PRISTIQ [Suspect]
     Indication: ANXIETY
     Route: 048
     Dates: start: 20090713

REACTIONS (4)
  - BLOOD PRESSURE INCREASED [None]
  - MYDRIASIS [None]
  - PALPITATIONS [None]
  - TACHYCARDIA [None]
